FAERS Safety Report 7128192-4 (Version None)
Quarter: 2010Q4

REPORT INFORMATION
  Report Type: 
  Country: None (occurrence: None)
  Receive Date: 20101115
  Receipt Date: 20050901
  Transmission Date: 20110411
  Serious: Yes (Death)
  Sender: FDA-Public Use
  Company Number: UTC-001987

PATIENT

DRUGS (1)
  1. REMODULIN [Suspect]
     Dosage: SUBCUTANEOUS
     Route: 058
     Dates: start: 20050801, end: 20050901

REACTIONS (1)
  - DEATH [None]
